FAERS Safety Report 6750015-3 (Version None)
Quarter: 2010Q2

REPORT INFORMATION
  Report Type: 
  Country: None (occurrence: None)
  Receive Date: 20100601
  Receipt Date: 20100525
  Transmission Date: 20101027
  Serious: Yes (Life-Threatening)
  Sender: FDA-Public Use
  Company Number: GXKR2010CH05904

PATIENT
  Age: 70 Year
  Sex: Female
  Weight: 69 kg

DRUGS (2)
  1. ALLOPUR (NGX) [Suspect]
     Dosage: 300 MG, QD
     Route: 048
     Dates: start: 20100303, end: 20100316
  2. BENDAMUSTINE HYDROCHLORIDE [Suspect]
     Indication: CHRONIC LYMPHOCYTIC LEUKAEMIA
     Dosage: 120 MG, QD
     Route: 042
     Dates: start: 20100303, end: 20100304

REACTIONS (6)
  - CHILLS [None]
  - COOMBS POSITIVE HAEMOLYTIC ANAEMIA [None]
  - NAUSEA [None]
  - PYREXIA [None]
  - THROMBOCYTOPENIA [None]
  - VOMITING [None]
